FAERS Safety Report 12979834 (Version 1)
Quarter: 2016Q4

REPORT INFORMATION
  Report Type: Report from Study
  Country: BR (occurrence: BR)
  Receive Date: 20161128
  Receipt Date: 20161128
  Transmission Date: 20170207
  Serious: Yes (Hospitalization, Other)
  Sender: FDA-Public Use
  Company Number: PHHY2016BR161818

PATIENT
  Sex: Female

DRUGS (2)
  1. EXELON PATCH [Suspect]
     Active Substance: RIVASTIGMINE
     Indication: MEMORY IMPAIRMENT
     Dosage: 9.5 MG, QD PATCH 10 (CM2)
     Route: 062
     Dates: start: 2001
  2. EXELON [Suspect]
     Active Substance: RIVASTIGMINE TARTRATE
     Indication: MEMORY IMPAIRMENT
     Dosage: UNK
     Route: 065
     Dates: start: 2000

REACTIONS (12)
  - Incorrect drug administration duration [Unknown]
  - Tinnitus [Unknown]
  - Anxiety [Unknown]
  - Malaise [Unknown]
  - Chikungunya virus infection [Unknown]
  - Erysipelas [Unknown]
  - Product use issue [Unknown]
  - Skin discolouration [Unknown]
  - Hypoacusis [Unknown]
  - Dementia Alzheimer^s type [Unknown]
  - Labyrinthitis [Unknown]
  - Ear disorder [Unknown]
